FAERS Safety Report 8831961 (Version 1)
Quarter: 2012Q4

REPORT INFORMATION
  Report Type: 
  Country: US (occurrence: US)
  Receive Date: 20121009
  Receipt Date: 20121009
  Transmission Date: 20130627
  Serious: No
  Sender: FDA-Public Use
  Company Number: US-ASTRAZENECA-2012SE73672

PATIENT
  Age: 57 Year
  Sex: Female
  Weight: 76.2 kg

DRUGS (1)
  1. NEXIUM [Suspect]
     Indication: SJOGREN^S SYNDROME
     Route: 048
     Dates: start: 2005

REACTIONS (1)
  - Sjogren^s syndrome [Unknown]
